FAERS Safety Report 21898660 (Version 1)
Quarter: 2023Q1

REPORT INFORMATION
  Report Type: Spontaneous
  Country: DE (occurrence: DE)
  Receive Date: 20230123
  Receipt Date: 20230123
  Transmission Date: 20230418
  Serious: Yes (Life-Threatening, Hospitalization, Other)
  Sender: FDA-Public Use
  Company Number: None

PATIENT
  Age: 64 Year
  Sex: Female

DRUGS (6)
  1. MEKINIST [Suspect]
     Active Substance: TRAMETINIB DIMETHYL SULFOXIDE
     Indication: Malignant melanoma
     Dosage: 1 MG, QD, (2-0-0)
     Route: 048
     Dates: start: 202207, end: 20221229
  2. TAFINLAR [Suspect]
     Active Substance: DABRAFENIB MESYLATE
     Indication: Malignant melanoma
     Dosage: 75 MG, Q12H, (CARDIAC), (1-0-1))
     Route: 048
     Dates: start: 202207, end: 20221229
  3. VITAMIN D [Concomitant]
     Active Substance: VITAMIN D NOS
     Indication: Product used for unknown indication
     Dosage: UNK
     Route: 065
     Dates: end: 20221229
  4. MARCUMAR [Concomitant]
     Active Substance: PHENPROCOUMON
     Indication: Product used for unknown indication
     Dosage: UNK
     Route: 065
     Dates: end: 20221229
  5. LEVOTHYROXINE SODIUM [Concomitant]
     Active Substance: LEVOTHYROXINE SODIUM
     Indication: Product used for unknown indication
     Dosage: UNK
     Route: 065
     Dates: end: 20221229
  6. TORSEMIDE [Concomitant]
     Active Substance: TORSEMIDE
     Indication: Product used for unknown indication
     Dosage: UNK
     Route: 065
     Dates: end: 20221229

REACTIONS (10)
  - Sepsis [Recovering/Resolving]
  - Acute kidney injury [Recovering/Resolving]
  - Anuria [Recovering/Resolving]
  - Cardiovascular disorder [Recovering/Resolving]
  - Pyrexia [Recovering/Resolving]
  - Bronchitis [Recovering/Resolving]
  - Procalcitonin increased [Recovering/Resolving]
  - Productive cough [Recovering/Resolving]
  - C-reactive protein increased [Recovering/Resolving]
  - Interleukin level increased [Recovering/Resolving]

NARRATIVE: CASE EVENT DATE: 20221225
